APPROVED DRUG PRODUCT: ENTECAVIR
Active Ingredient: ENTECAVIR
Strength: 1MG
Dosage Form/Route: TABLET;ORAL
Application: A212126 | Product #002 | TE Code: AB
Applicant: BRIGHTGENE BIO-MEDICAL TECHNOLOGY CO LTD
Approved: Sep 25, 2019 | RLD: No | RS: No | Type: RX